FAERS Safety Report 9879515 (Version 2)
Quarter: 2014Q1

REPORT INFORMATION
  Report Type: Spontaneous
  Country: SE (occurrence: SE)
  Receive Date: 20140206
  Receipt Date: 20140327
  Transmission Date: 20141002
  Serious: Yes (Other)
  Sender: FDA-Public Use
  Company Number: CHPA2014SE002058

PATIENT
  Sex: Male

DRUGS (1)
  1. NICOTINELL CHEWING GUM FRUIT [Suspect]

REACTIONS (2)
  - Dyspnoea [Unknown]
  - Throat irritation [Unknown]
